FAERS Safety Report 5188363-3 (Version None)
Quarter: 2006Q4

REPORT INFORMATION
  Report Type: 
  Country: None (occurrence: None)
  Receive Date: 20061221
  Receipt Date: 20061211
  Transmission Date: 20070319
  Serious: Yes (Disabling)
  Sender: FDA-Public Use
  Company Number: FR-GILEAD-2006-0010816

PATIENT
  Age: 53 Year
  Sex: Male
  Weight: 54 kg

DRUGS (14)
  1. VIREAD [Suspect]
     Route: 048
     Dates: start: 20060615, end: 20060921
  2. FUZEON [Suspect]
     Route: 058
     Dates: start: 20060615, end: 20061010
  3. PREZISTA [Suspect]
     Route: 048
     Dates: start: 20060615, end: 20061010
  4. NORVIR [Concomitant]
  5. TRIZIVIR [Concomitant]
  6. LEDERFOLINE [Concomitant]
  7. PYRIMETHAMINE TAB [Concomitant]
  8. PENTACARINAT AEROSOL [Concomitant]
  9. RIMIFON [Concomitant]
  10. ANSATIPINE [Concomitant]
  11. PIRILENE [Concomitant]
  12. MOTILIUM [Concomitant]
  13. THIAMINE HCL [Concomitant]
  14. VITAMIN B6 [Concomitant]

REACTIONS (3)
  - MOTOR DYSFUNCTION [None]
  - NEUROPATHY PERIPHERAL [None]
  - PARAESTHESIA [None]
